FAERS Safety Report 6300057-7 (Version None)
Quarter: 2009Q3

REPORT INFORMATION
  Report Type: 
  Country: None (occurrence: None)
  Receive Date: 20090806
  Receipt Date: 20090728
  Transmission Date: 20100115
  Serious: Yes (Hospitalization)
  Sender: FDA-Public Use
  Company Number: FR-ELI_LILLY_AND_COMPANY-FR200907006481

PATIENT
  Age: 76 Year
  Sex: Female

DRUGS (7)
  1. CYMBALTA [Suspect]
     Indication: NEURALGIA
     Dosage: 60 MG (1 GEL), DAILY (1/D)
     Route: 048
     Dates: start: 20090605, end: 20090101
  2. INSULIN [Concomitant]
     Dosage: UNK, UNKNOWN
     Route: 065
  3. ANTIHYPERTENSIVES [Concomitant]
     Dosage: UNK, UNKNOWN
     Route: 065
  4. DIURETICS [Concomitant]
     Dosage: UNK, UNKNOWN
     Route: 065
  5. ANXIOLYTICS [Concomitant]
     Dosage: UNK, UNKNOWN
     Route: 065
  6. NORFLOXACIN [Concomitant]
     Dosage: UNK, UNKNOWN
     Route: 065
  7. MACROGOL [Concomitant]
     Dosage: UNK, UNKNOWN
     Route: 065

REACTIONS (2)
  - OFF LABEL USE [None]
  - RENAL FAILURE [None]
